FAERS Safety Report 12882222 (Version 2)
Quarter: 2016Q4

REPORT INFORMATION
  Report Type: Spontaneous
  Country: US (occurrence: US)
  Receive Date: 20161025
  Receipt Date: 20161028
  Transmission Date: 20170207
  Serious: Yes (Other)
  Sender: FDA-Public Use
  Company Number: US-RECKITT BENCKISER HEALTHCARE INT LIMITED-RB-92036-2016

PATIENT
  Age: 55 Year
  Sex: Male

DRUGS (1)
  1. MUCINEX FAST-MAX SEVERE CONGESTION AND COUGH [Suspect]
     Active Substance: DEXTROMETHORPHAN HYDROBROMIDE\GUAIFENESIN\PHENYLEPHRINE HYDROCHLORIDE
     Indication: PRODUCT USED FOR UNKNOWN INDICATION
     Dosage: UNK, USED AS DIRECTED
     Route: 065
     Dates: start: 20161017, end: 20161017

REACTIONS (6)
  - Face injury [Unknown]
  - Neck pain [Unknown]
  - Loss of consciousness [Unknown]
  - Pain in extremity [Unknown]
  - Foot fracture [Unknown]
  - Back pain [Unknown]

NARRATIVE: CASE EVENT DATE: 20161018
